FAERS Safety Report 6086125-6 (Version None)
Quarter: 2009Q1

REPORT INFORMATION
  Report Type: 
  Country: None (occurrence: None)
  Receive Date: 20090217
  Receipt Date: 20090217
  Transmission Date: 20090719
  Serious: Yes (Life-Threatening, Hospitalization, Disabling, Other)
  Sender: FDA-Public Use
  Company Number: None

PATIENT
  Age: 8 Year
  Sex: Male
  Weight: 25.855 kg

DRUGS (1)
  1. ABILIFY [Suspect]
     Indication: AFFECTIVE DISORDER
     Dates: start: 20090213, end: 20090213

REACTIONS (8)
  - ABASIA [None]
  - APHASIA [None]
  - DRUG HYPERSENSITIVITY [None]
  - FACIAL PALSY [None]
  - NECK PAIN [None]
  - PETIT MAL EPILEPSY [None]
  - TONGUE DISORDER [None]
  - UNRESPONSIVE TO STIMULI [None]
